FAERS Safety Report 4681488-8 (Version None)
Quarter: 2005Q2

REPORT INFORMATION
  Report Type: 
  Country: None (occurrence: None)
  Receive Date: 20050602
  Receipt Date: 20050513
  Transmission Date: 20051028
  Serious: No
  Sender: FDA-Public Use
  Company Number: CAR_0019_2005

PATIENT
  Age: 49 Year
  Sex: Female

DRUGS (4)
  1. FLUOXETINE [Suspect]
     Dosage: 10 MG QDAY
  2. IMIPRAMINE [Suspect]
     Dosage: 50 MG QHS
  3. LEVOFLOXACIN [Suspect]
     Indication: PYELONEPHRITIS
     Dosage: 500 MG 2 PER 24 HR IV
     Route: 042
  4. CEFTRIAXONE [Concomitant]

REACTIONS (5)
  - CHEST DISCOMFORT [None]
  - DRUG INTERACTION POTENTIATION [None]
  - DYSPNOEA [None]
  - ELECTROCARDIOGRAM QT CORRECTED INTERVAL PROLONGED [None]
  - PYELONEPHRITIS [None]
